FAERS Safety Report 18154207 (Version 1)
Quarter: 2020Q3

REPORT INFORMATION
  Report Type: Other
  Country: US (occurrence: US)
  Receive Date: 20200816
  Receipt Date: 20200816
  Transmission Date: 20201103
  Serious: Yes (Other)
  Sender: FDA-Public Use
  Company Number: US-ROCHE-2657954

PATIENT
  Sex: Male

DRUGS (1)
  1. RITUXAN [Suspect]
     Active Substance: RITUXIMAB
     Indication: IMMUNE SYSTEM DISORDER
     Route: 065

REACTIONS (4)
  - Off label use [Unknown]
  - Dyspnoea [Unknown]
  - Intentional product use issue [Unknown]
  - Cerebrovascular accident [Unknown]
